FAERS Safety Report 7077480-9 (Version None)
Quarter: 2010Q4

REPORT INFORMATION
  Report Type: 
  Country: None (occurrence: None)
  Receive Date: 20101101
  Receipt Date: 20101018
  Transmission Date: 20110411
  Serious: Yes (Other)
  Sender: FDA-Public Use
  Company Number: US-ELI_LILLY_AND_COMPANY-US201010004321

PATIENT
  Age: 84 Year
  Sex: Male

DRUGS (6)
  1. CIALIS [Suspect]
     Indication: ERECTILE DYSFUNCTION
     Dosage: 20 MG, AS NEEDED
  2. CIALIS [Suspect]
     Dosage: 20 MG, AS NEEDED
  3. SOTALOL [Concomitant]
     Dosage: 60 MG, DAILY (1/D)
  4. DIGOXIN [Concomitant]
     Dosage: 0.125 MG, DAILY (1/D)
  5. FLECAINIDE ACETATE [Concomitant]
     Dosage: 50 MG, 3/D
  6. WARFARIN [Concomitant]
     Dosage: 3 MG, DAILY (1/D)

REACTIONS (6)
  - ATRIAL FIBRILLATION [None]
  - BLOOD PRESSURE DECREASED [None]
  - DRUG INEFFECTIVE [None]
  - FEELING ABNORMAL [None]
  - INTENTIONAL DRUG MISUSE [None]
  - MEDICATION ERROR [None]
